FAERS Safety Report 7639283-3 (Version None)
Quarter: 2011Q3

REPORT INFORMATION
  Report Type: 
  Country: None (occurrence: None)
  Receive Date: 20110727
  Receipt Date: 20110721
  Transmission Date: 20111222
  Serious: Yes (Hospitalization)
  Sender: FDA-Public Use
  Company Number: FR-MERCK-1107FRA00101

PATIENT
  Age: 51 Year
  Sex: Male

DRUGS (3)
  1. CELIPROLOL HYDROCHLORIDE [Suspect]
     Route: 048
  2. COZAAR [Suspect]
     Indication: HYPERTENSION
     Route: 048
  3. BENFLUOREX HYDROCHLORIDE [Suspect]
     Indication: TYPE 2 DIABETES MELLITUS
     Route: 048
     Dates: start: 20050101, end: 20091201

REACTIONS (2)
  - AORTIC VALVE INCOMPETENCE [None]
  - AORTIC VALVE REPLACEMENT [None]
